FAERS Safety Report 10101135 (Version 2)
Quarter: 2014Q2

REPORT INFORMATION
  Report Type: Spontaneous
  Country: GB (occurrence: GB)
  Receive Date: 20140424
  Receipt Date: 20140511
  Transmission Date: 20141212
  Serious: No
  Sender: FDA-Public Use
  Company Number: GB-BRISTOL-MYERS SQUIBB COMPANY-20667366

PATIENT
  Sex: Male

DRUGS (1)
  1. GLUCOPHAGE TABS 500 MG [Suspect]

REACTIONS (1)
  - Product packaging issue [Unknown]
